FAERS Safety Report 5525651-2 (Version None)
Quarter: 2007Q4

REPORT INFORMATION
  Report Type: 
  Country: None (occurrence: None)
  Receive Date: 20071120
  Receipt Date: 20071120
  Transmission Date: 20080405
  Serious: Yes (Other)
  Sender: FDA-Public Use
  Company Number: None

PATIENT
  Age: 17 Year
  Sex: Male
  Weight: 59.4212 kg

DRUGS (6)
  1. DESYREL [Suspect]
     Indication: INSOMNIA
     Dosage: 100MG 1X AT BEDTIME  PO
     Route: 048
     Dates: start: 20071001, end: 20071101
  2. OPANA ER [Concomitant]
  3. ATENOLOL [Concomitant]
  4. XYZAL [Concomitant]
  5. NORCO [Concomitant]
  6. COLACE [Concomitant]

REACTIONS (3)
  - NIGHTMARE [None]
  - SLEEP PARALYSIS [None]
  - SLEEP TERROR [None]
